FAERS Safety Report 8384058-3 (Version None)
Quarter: 2012Q2

REPORT INFORMATION
  Report Type: 
  Country: None (occurrence: None)
  Receive Date: 20120524
  Receipt Date: 20120515
  Transmission Date: 20120825
  Serious: Yes (Hospitalization)
  Sender: FDA-Public Use
  Company Number: FR-ROCHE-1069532

PATIENT
  Sex: Male
  Weight: 77.5 kg

DRUGS (7)
  1. CARBOPLATIN [Concomitant]
     Dosage: 640MG/CYCLE
     Dates: start: 20120424
  2. METHYLPREDNISOLONE [Concomitant]
     Route: 042
     Dates: start: 20120424
  3. CYTARABINE [Concomitant]
     Route: 042
     Dates: start: 20120423
  4. CYTARABINE [Concomitant]
     Route: 042
     Dates: start: 20120424
  5. PREDNISONE [Concomitant]
     Route: 048
     Dates: start: 20120425, end: 20120427
  6. METHYLPREDNISOLONE [Concomitant]
     Route: 042
     Dates: start: 20120423
  7. MABTHERA [Suspect]
     Indication: MANTLE CELL LYMPHOMA
     Dosage: 712MG PER CYCLE
     Route: 042
     Dates: start: 20120426

REACTIONS (1)
  - PULMONARY EMBOLISM [None]
